FAERS Safety Report 5896369-1 (Version None)
Quarter: 2008Q3

REPORT INFORMATION
  Report Type: 
  Country: None (occurrence: None)
  Receive Date: 20080924
  Receipt Date: 20071008
  Transmission Date: 20090109
  Serious: Yes (Other)
  Sender: FDA-Public Use
  Company Number: US-ASTRAZENECA-2007UW23383

PATIENT
  Age: 55 Year
  Sex: Female

DRUGS (4)
  1. SEROQUEL [Suspect]
     Route: 048
  2. SEROQUEL [Suspect]
     Route: 048
     Dates: start: 20071008
  3. NAMENDA [Concomitant]
  4. EFFEXOR [Concomitant]

REACTIONS (2)
  - DYSPHAGIA [None]
  - DYSTONIA [None]
